FAERS Safety Report 11860358 (Version 2)
Quarter: 2016Q1

REPORT INFORMATION
  Report Type: Spontaneous
  Country: GA (occurrence: GA)
  Receive Date: 20151222
  Receipt Date: 20160120
  Transmission Date: 20160526
  Serious: Yes (Death, Life-Threatening, Hospitalization)
  Sender: FDA-Public Use
  Company Number: GA-PFIZER INC-2015455187

PATIENT
  Age: 17 Year
  Sex: Female

DRUGS (2)
  1. ARTOTEC [Suspect]
     Active Substance: DICLOFENAC SODIUM\MISOPROSTOL
     Indication: ABORTION
     Dosage: 3 DF, SINGLE
     Route: 048
  2. ARTOTEC [Suspect]
     Active Substance: DICLOFENAC SODIUM\MISOPROSTOL
     Dosage: UNK
     Route: 067

REACTIONS (6)
  - Shock [Fatal]
  - Incorrect route of drug administration [Fatal]
  - Product use issue [Fatal]
  - Abortion [Fatal]
  - Asthenia [Fatal]
  - Neurological symptom [Fatal]

NARRATIVE: CASE EVENT DATE: 20151207
